FAERS Safety Report 12574476 (Version 1)
Quarter: 2016Q3

REPORT INFORMATION
  Report Type: Spontaneous
  Country: US (occurrence: US)
  Receive Date: 20160720
  Receipt Date: 20160720
  Transmission Date: 20161109
  Serious: No
  Sender: FDA-Public Use
  Company Number: US-GLAXOSMITHKLINE-US2016097487

PATIENT
  Sex: Female

DRUGS (10)
  1. FLORAJEN [Concomitant]
  2. KLONOPIN [Concomitant]
     Active Substance: CLONAZEPAM
  3. BREO ELLIPTA [Suspect]
     Active Substance: FLUTICASONE FUROATE\VILANTEROL TRIFENATATE
     Dosage: UNK, PRN
  4. SEROQUEL [Suspect]
     Active Substance: QUETIAPINE FUMARATE
     Indication: PRODUCT USED FOR UNKNOWN INDICATION
     Dosage: UNK
     Dates: end: 2016
  5. ZYRTEC [Concomitant]
     Active Substance: CETIRIZINE HYDROCHLORIDE
  6. CLONIDINE. [Concomitant]
     Active Substance: CLONIDINE
  7. HYDROCHLOROTHIAZIDE + LOSARTAN [Concomitant]
  8. BREO ELLIPTA [Suspect]
     Active Substance: FLUTICASONE FUROATE\VILANTEROL TRIFENATATE
     Indication: COUGH
     Dosage: UNK UNK, QD
     Route: 055
     Dates: start: 2016
  9. FLONASE [Concomitant]
     Active Substance: FLUTICASONE PROPIONATE
  10. ROBAXIN [Concomitant]
     Active Substance: METHOCARBAMOL

REACTIONS (6)
  - Intentional product misuse [Unknown]
  - Weight increased [Unknown]
  - Hunger [Unknown]
  - Abdominal distension [Unknown]
  - Dyspnoea [Unknown]
  - Drug dose omission [Recovered/Resolved]

NARRATIVE: CASE EVENT DATE: 2014
